FAERS Safety Report 6567373-5 (Version None)
Quarter: 2010Q1

REPORT INFORMATION
  Report Type: 
  Country: None (occurrence: None)
  Receive Date: 20100202
  Receipt Date: 20100125
  Transmission Date: 20100710
  Serious: Yes (Other)
  Sender: FDA-Public Use
  Company Number: PHEH2008US06152

PATIENT
  Sex: Male

DRUGS (22)
  1. ELIDEL [Suspect]
     Indication: ECZEMA
     Dosage: UNK
     Route: 061
     Dates: start: 20031001
  2. HYPER-CVAD [Concomitant]
  3. CHOP [Concomitant]
  4. ALLEGRA [Concomitant]
  5. AMBIEN [Concomitant]
  6. PROTONIX [Concomitant]
  7. CIPROFLOXACIN [Concomitant]
  8. COMPAZINE [Concomitant]
  9. DEXAMETHASONE [Concomitant]
  10. DIFLUCAN [Concomitant]
  11. KYTRIL [Concomitant]
  12. PREDNISONE [Concomitant]
  13. VALTREX [Concomitant]
  14. LIDOCAINE HCL VISCOUS [Concomitant]
  15. BENADRYL ^ACHE^ [Concomitant]
  16. MAALOX                                  /NET/ [Concomitant]
  17. EXCEDRIN (MIGRAINE) [Concomitant]
  18. DECADRON                                /CAN/ [Concomitant]
  19. NEULASTA [Concomitant]
  20. SENOKOT                                 /UNK/ [Concomitant]
  21. COLACE [Concomitant]
  22. MIRALAX [Concomitant]

REACTIONS (29)
  - ANAEMIA [None]
  - ANAL FISSURE [None]
  - EPISTAXIS [None]
  - ERYTHEMA [None]
  - FLUSHING [None]
  - HAEMOGLOBIN ABNORMAL [None]
  - HAEMORRHOIDS [None]
  - HEADACHE [None]
  - HEPATOSPLENOMEGALY [None]
  - INFECTIOUS MONONUCLEOSIS [None]
  - LEUKOPENIA [None]
  - LOCAL SWELLING [None]
  - MIGRAINE [None]
  - NON-HODGKIN'S LYMPHOMA [None]
  - PHARYNGITIS [None]
  - PROCTALGIA [None]
  - PRURITUS [None]
  - PSORIASIS [None]
  - RASH [None]
  - RECTAL HAEMORRHAGE [None]
  - REFLUX OESOPHAGITIS [None]
  - RESPIRATORY TRACT CONGESTION [None]
  - SEBORRHOEIC KERATOSIS [None]
  - SINUSITIS [None]
  - SKIN EXFOLIATION [None]
  - THROMBOCYTOPENIA [None]
  - TONSILLAR HYPERTROPHY [None]
  - URTICARIA [None]
  - WOUND INFECTION STAPHYLOCOCCAL [None]
